FAERS Safety Report 20357113 (Version 2)
Quarter: 2022Q1

REPORT INFORMATION
  Report Type: Spontaneous
  Country: FR (occurrence: FR)
  Receive Date: 20220120
  Receipt Date: 20220207
  Transmission Date: 20220423
  Serious: Yes (Other)
  Sender: FDA-Public Use
  Company Number: FR-TAKEDA-2022TUS003401

PATIENT
  Age: 79 Year
  Sex: Female

DRUGS (3)
  1. ALUNBRIG [Suspect]
     Active Substance: BRIGATINIB
     Indication: Lung neoplasm malignant
     Dosage: 90 MILLIGRAM
     Route: 065
  2. ALUNBRIG [Suspect]
     Active Substance: BRIGATINIB
     Indication: Metastases to bone
     Dosage: 180 MILLIGRAM
     Route: 065
     Dates: end: 20211230
  3. ALUNBRIG [Suspect]
     Active Substance: BRIGATINIB
     Dosage: 30 MILLIGRAM, BID
     Route: 065
     Dates: start: 20220115

REACTIONS (3)
  - Spinal cord compression [Recovered/Resolved]
  - Anaemia [Unknown]
  - Oedema peripheral [Not Recovered/Not Resolved]
